FAERS Safety Report 17374475 (Version 2)
Quarter: 2020Q1

REPORT INFORMATION
  Report Type: Report from Study
  Country: None (occurrence: ES)
  Receive Date: 20200206
  Receipt Date: 20200206
  Transmission Date: 20200409
  Serious: Yes (Hospitalization, Other)
  Sender: FDA-Public Use
  Company Number: ES-US WORLDMEDS, LLC-SLP202001-000166

PATIENT
  Age: 78 Year
  Sex: Male

DRUGS (1)
  1. BOTULINUM TOXIN TYPE B [Suspect]
     Active Substance: RIMABOTULINUMTOXINB
     Indication: OESOPHAGEAL ACHALASIA
     Dosage: UNKNOWN

REACTIONS (3)
  - Off label use [Unknown]
  - Oesophageal perforation [Unknown]
  - Gastrointestinal anastomotic leak [Recovering/Resolving]
